FAERS Safety Report 9054674 (Version 2)
Quarter: 2013Q3

REPORT INFORMATION
  Report Type: Spontaneous
  Country: DE (occurrence: DE)
  Receive Date: 20130208
  Receipt Date: 20130718
  Transmission Date: 20140515
  Serious: Yes (Death, Hospitalization, Other)
  Sender: FDA-Public Use
  Company Number: DE-JNJFOC-20130114826

PATIENT
  Sex: Female
  Weight: 55 kg

DRUGS (3)
  1. HALDOL [Suspect]
     Indication: PRODUCT USED FOR UNKNOWN INDICATION
     Dosage: ONE TABLET
     Route: 048
  2. LEPONEX [Suspect]
     Indication: PRODUCT USED FOR UNKNOWN INDICATION
     Dosage: ONE TABLET
     Route: 048
  3. TRUXAL [Suspect]
     Indication: PRODUCT USED FOR UNKNOWN INDICATION
     Dosage: 2 TABLETS
     Route: 048

REACTIONS (6)
  - Loss of consciousness [Fatal]
  - Accidental exposure to product [Unknown]
  - Respiratory failure [Fatal]
  - Plasma cell myeloma [Fatal]
  - White blood cell count decreased [Fatal]
  - Pneumonia aspiration [Fatal]
